FAERS Safety Report 4411966-8 (Version None)
Quarter: 2004Q3

REPORT INFORMATION
  Report Type: 
  Country: None (occurrence: None)
  Receive Date: 20040727
  Receipt Date: 20040712
  Transmission Date: 20050211
  Serious: Yes (Hospitalization, Disabling)
  Sender: FDA-Public Use
  Company Number: 04P-167-0262518-00

PATIENT
  Age: 41 Year
  Sex: Female
  Weight: 73.5 kg

DRUGS (11)
  1. HUMIRA [Suspect]
     Indication: RELAPSING POLYCHONDRITIS
     Dosage: 40 MG, 1 IN 2 WK, SUBCUTANEOUS
     Route: 058
     Dates: start: 20030701
  2. HUMIRA [Suspect]
     Indication: VASCULITIS
     Dosage: 40 MG, 1 IN 2 WK, SUBCUTANEOUS
     Route: 058
     Dates: start: 20030701
  3. METHOTREXATE [Concomitant]
  4. DEFLAZACORT [Concomitant]
  5. WARFARIN SODIUM [Concomitant]
  6. METOPROLOL [Concomitant]
  7. CALCIUM CARBONATE [Concomitant]
  8. RANITIDINE [Concomitant]
  9. FOLIC ACID [Concomitant]
  10. RISEDRONATE SODIUM [Concomitant]
  11. CARBAMAZEPINE [Concomitant]

REACTIONS (6)
  - CIRCULATORY COLLAPSE [None]
  - EPILEPSY [None]
  - FALL [None]
  - GLASGOW COMA SCALE ABNORMAL [None]
  - GRAND MAL CONVULSION [None]
  - SPINAL FRACTURE [None]
